FAERS Safety Report 17919572 (Version 1)
Quarter: 2020Q2

REPORT INFORMATION
  Report Type: Spontaneous
  Country: US (occurrence: US)
  Receive Date: 20200619
  Receipt Date: 20200619
  Transmission Date: 20200714
  Serious: Yes (Death, Other)
  Sender: FDA-Public Use
  Company Number: US-NAPPMUNDI-USA-2020-0153405

PATIENT
  Sex: Female

DRUGS (2)
  1. OXYFAST [Suspect]
     Active Substance: OXYCODONE
     Indication: HEADACHE
     Route: 048
  2. OXYCONTIN [Suspect]
     Active Substance: OXYCODONE HYDROCHLORIDE
     Indication: HEADACHE
     Dosage: UNK
     Route: 048

REACTIONS (3)
  - Accidental overdose [Fatal]
  - Sedation [Unknown]
  - Sudden onset of sleep [Unknown]

NARRATIVE: CASE EVENT DATE: 20120929
